FAERS Safety Report 22400908 (Version 1)
Quarter: 2023Q2

REPORT INFORMATION
  Report Type: Spontaneous
  Country: US (occurrence: None)
  Receive Date: 20230601
  Receipt Date: 20230601
  Transmission Date: 20230722
  Serious: Yes (Other)
  Sender: FDA-Public Use
  Company Number: None

PATIENT
  Age: 85 Year
  Sex: Female
  Weight: 92.53 kg

DRUGS (1)
  1. METRONIDAZOLE [Suspect]
     Active Substance: METRONIDAZOLE
     Indication: Bacterial vaginosis
     Dosage: FREQUENCY : TWICE A DAY;?
     Route: 048
     Dates: start: 20230501, end: 20230501

REACTIONS (13)
  - Headache [None]
  - Tremor [None]
  - Feeling cold [None]
  - Peripheral swelling [None]
  - Erythema [None]
  - Heart rate increased [None]
  - Dyspnoea [None]
  - Feeding disorder [None]
  - Bedridden [None]
  - Anxiety [None]
  - Tremor [None]
  - Asthenia [None]
  - Swelling [None]

NARRATIVE: CASE EVENT DATE: 20230501
